FAERS Safety Report 8262299-3 (Version None)
Quarter: 2012Q1

REPORT INFORMATION
  Report Type: 
  Country: None (occurrence: None)
  Receive Date: 20120327
  Receipt Date: 20090422
  Transmission Date: 20120608
  Serious: Yes (Hospitalization)
  Sender: FDA-Public Use
  Company Number: PHEH2009US04068

PATIENT
  Sex: Female

DRUGS (1)
  1. GLEEVEC [Suspect]
     Dosage: 400 MG, BID, ORAL, 600 MG, QD, ORAL
     Route: 048

REACTIONS (3)
  - HYPOKALAEMIA [None]
  - DEHYDRATION [None]
  - DIARRHOEA [None]
